FAERS Safety Report 5491293-0 (Version None)
Quarter: 2007Q4

REPORT INFORMATION
  Report Type: 
  Country: None (occurrence: None)
  Receive Date: 20071019
  Receipt Date: 20071016
  Transmission Date: 20080405
  Serious: Yes (Hospitalization)
  Sender: FDA-Public Use
  Company Number: JP-ROXANE LABORATORIES, INC-2007-BP-22850RO

PATIENT
  Age: 66 Year
  Sex: Female

DRUGS (5)
  1. PAROXETINE [Suspect]
     Indication: DEPRESSION
  2. PAROXETINE [Suspect]
  3. PAROXETINE [Suspect]
  4. SULPIRIDE [Suspect]
     Indication: DEPRESSION
  5. QUETIAPINE FUMARATE [Concomitant]
     Indication: DEPRESSION

REACTIONS (3)
  - ABNORMAL BEHAVIOUR [None]
  - DELIRIUM [None]
  - DRUG INEFFECTIVE [None]
